FAERS Safety Report 13169086 (Version 3)
Quarter: 2019Q1

REPORT INFORMATION
  Report Type: Report from Study
  Country: None (occurrence: US)
  Receive Date: 20170201
  Receipt Date: 20190107
  Transmission Date: 20190417
  Serious: Yes (Death, Hospitalization)
  Sender: FDA-Public Use
  Company Number: US-VIFOR (INTERNATIONAL) INC.-VIT-2017-00781

PATIENT
  Age: 91 Year
  Sex: Male
  Weight: 58 kg

DRUGS (1)
  1. VELTASSA [Suspect]
     Active Substance: PATIROMER
     Indication: HYPERKALAEMIA
     Route: 048

REACTIONS (6)
  - Pneumonia [Recovered/Resolved]
  - Dehydration [Recovered/Resolved]
  - Full blood count decreased [Unknown]
  - Middle ear effusion [Recovered/Resolved]
  - Product dose omission [Unknown]
  - Death [Fatal]

NARRATIVE: CASE EVENT DATE: 201601
